FAERS Safety Report 5882837-5 (Version None)
Quarter: 2008Q3

REPORT INFORMATION
  Report Type: 
  Country: None (occurrence: None)
  Receive Date: 20080913
  Receipt Date: 20080815
  Transmission Date: 20090109
  Serious: No
  Sender: FDA-Public Use
  Company Number: US-ABBOTT-08P-163-0471220-00

PATIENT
  Sex: Female
  Weight: 124.85 kg

DRUGS (9)
  1. HUMIRA [Suspect]
     Indication: RHEUMATOID ARTHRITIS
     Route: 050
     Dates: start: 20070801
  2. METHOTREXATE [Concomitant]
     Indication: RHEUMATOID ARTHRITIS
     Dosage: 2.5 MG, 2 TABLETS, 1 IN 1 W
     Route: 048
     Dates: start: 20050101
  3. FOLIC ACID [Concomitant]
     Indication: RHEUMATOID ARTHRITIS
     Route: 048
     Dates: start: 20050101
  4. ESOMEPRAZOLE MAGNESIUM [Concomitant]
     Indication: GASTROOESOPHAGEAL REFLUX DISEASE
     Route: 048
     Dates: start: 20070101
  5. METOPROLOL SUCCINATE [Concomitant]
     Indication: HYPERTENSION
     Route: 048
     Dates: start: 20030101
  6. FLUOXETINE [Concomitant]
     Indication: DEPRESSION
     Route: 048
     Dates: start: 20070101
  7. TYLOX [Concomitant]
     Indication: PAIN
     Dosage: 10/325 MILLIGRAMS, 4 IN 1 D
     Route: 048
     Dates: start: 20070101
  8. PREDNISONE TAB [Concomitant]
     Indication: RHEUMATOID ARTHRITIS
     Route: 048
     Dates: start: 20070101
  9. MARVELON [Concomitant]
     Indication: CONTRACEPTION
     Route: 048
     Dates: start: 20030101

REACTIONS (2)
  - CYSTITIS [None]
  - RESTRICTIVE PULMONARY DISEASE [None]
